FAERS Safety Report 5246154-9 (Version None)
Quarter: 2007Q1

REPORT INFORMATION
  Report Type: 
  Country: None (occurrence: None)
  Receive Date: 20070220
  Receipt Date: 20070208
  Transmission Date: 20070707
  Serious: Yes (Hospitalization)
  Sender: FDA-Public Use
  Company Number: T07-JPN-00628-01

PATIENT
  Age: 80 Year
  Sex: Male
  Weight: 39.9 kg

DRUGS (6)
  1. MEMANTINE HCL [Suspect]
     Indication: DEMENTIA ALZHEIMER'S TYPE
     Dates: start: 20061205
  2. CERNITIN POLLEN EXTRACT [Concomitant]
  3. TAMSULOSIN HCL [Concomitant]
  4. MAGNESIUM OXIDE [Concomitant]
  5. EPINASTINE HYDROCHLORIDE [Concomitant]
  6. CROTAMITON [Concomitant]

REACTIONS (6)
  - ANOREXIA [None]
  - ASPARTATE AMINOTRANSFERASE INCREASED [None]
  - BLOOD CREATINE PHOSPHOKINASE INCREASED [None]
  - BLOOD LACTATE DEHYDROGENASE INCREASED [None]
  - C-REACTIVE PROTEIN INCREASED [None]
  - DEPRESSED LEVEL OF CONSCIOUSNESS [None]
